FAERS Safety Report 18665775 (Version 4)
Quarter: 2021Q2

REPORT INFORMATION
  Report Type: Report from Study
  Country: US (occurrence: US)
  Receive Date: 20201226
  Receipt Date: 20210502
  Transmission Date: 20210717
  Serious: Yes (Other)
  Sender: FDA-Public Use
  Company Number: NVSC2020US335574

PATIENT
  Sex: Female

DRUGS (2)
  1. ENTRESTO [Suspect]
     Active Substance: SACUBITRIL\VALSARTAN
     Indication: CARDIAC FAILURE
     Dosage: 50 MG, BID (24/26 MG)
     Route: 048
     Dates: start: 201907
  2. ENTRESTO [Suspect]
     Active Substance: SACUBITRIL\VALSARTAN
     Dosage: 100 MG, BID (49/51 MG)
     Route: 048

REACTIONS (10)
  - Hypersensitivity [Unknown]
  - Myocardial infarction [Unknown]
  - Weight increased [Unknown]
  - Anxiety [Unknown]
  - Dyspnoea [Unknown]
  - Chest pain [Unknown]
  - Throat clearing [Unknown]
  - Cough [Unknown]
  - Stress [Unknown]
  - Back pain [Unknown]
